FAERS Safety Report 6829590-6 (Version None)
Quarter: 2010Q3

REPORT INFORMATION
  Report Type: 
  Country: None (occurrence: None)
  Receive Date: 20100709
  Receipt Date: 20070420
  Transmission Date: 20110219
  Serious: No
  Sender: FDA-Public Use
  Company Number: US-PFIZER INC-2007009386

PATIENT
  Sex: Female

DRUGS (1)
  1. CHANTIX [Suspect]
     Dates: start: 20061225, end: 20061229

REACTIONS (4)
  - ARTHRALGIA [None]
  - ARTHRITIS [None]
  - CHILLS [None]
  - NAUSEA [None]
